FAERS Safety Report 5264343-4 (Version None)
Quarter: 2007Q1

REPORT INFORMATION
  Report Type: 
  Country: None (occurrence: None)
  Receive Date: 20061213
  Receipt Date: 20050301
  Transmission Date: 20070707
  Serious: Yes (Other)
  Sender: FDA-Public Use
  Company Number: 2005UW03298

PATIENT
  Age: 68 Year
  Sex: Female
  Weight: 86.182 kg

DRUGS (1)
  1. IRESSA [Suspect]
     Dosage: 250 MG DAILY PO
     Route: 048
     Dates: start: 20040101

REACTIONS (2)
  - MYALGIA [None]
  - RASH PAPULAR [None]
